FAERS Safety Report 9595091 (Version 1)
Quarter: 2013Q4

REPORT INFORMATION
  Report Type: Spontaneous
  Country: US (occurrence: None)
  Receive Date: 20131002
  Receipt Date: 20131002
  Transmission Date: 20140711
  Serious: Yes (Life-Threatening)
  Sender: FDA-Public Use
  Company Number: AUR-APL-2013-08089

PATIENT
  Age: 15 Year
  Sex: Male

DRUGS (14)
  1. LEVETIRACETAM [Suspect]
     Dosage: 4250 MG, 1 D, UNKNOWN
  2. TOPIRAMATE (TOPIRAMATE) [Suspect]
     Dosage: UNKNOWN
  3. VALPROATE DE SODIUM [Suspect]
     Dosage: UNKNOWN
  4. FOSPHENYTOIN SODIUM [Suspect]
     Dosage: UNKNOWN
  5. PROPOFOL (PROPOFOL) [Suspect]
     Dosage: UNKNOWN
  6. MIDAZOLAM (MIDAZOLAM) [Suspect]
     Dosage: 1 MG/KG/H, 85 MG, H; , UNKNOWN
  7. KETAMINE [Suspect]
  8. OXCARBAZEPINE [Suspect]
  9. PHENOBARBITAL [Suspect]
     Dosage: PSL = 42 UG/ML ; UNKNOWN?
  10. PENTOBARBITAL [Suspect]
     Dosage: (MAX DOSE 3.5 MG/KG/H, 297.5
  11. RITUXIMAB (RITUXIMAB) [Suspect]
     Dosage: 850 MG/DOSE FOR DOSE, UNKNOWN
  12. ZONISAMIDE [Suspect]
     Indication: STATUS EPILEPTICUS
     Dosage: 425 MG 1 IN 1D
  13. CYCLOPHOSPHAMIDE [Suspect]
     Indication: ENCEPHALITIS
     Dosage: 750 MG/M2
  14. CYCLOPHOSPHAMIDE (CYCLOPHOSPHAMIDE) [Suspect]

REACTIONS (5)
  - Status epilepticus [None]
  - Aphasia [None]
  - Encephalopathy [None]
  - Drug ineffective [None]
  - Encephalitis [None]
